FAERS Safety Report 22363657 (Version 1)
Quarter: 2023Q2

REPORT INFORMATION
  Report Type: Report from Study
  Country: US (occurrence: US)
  Receive Date: 20230525
  Receipt Date: 20230525
  Transmission Date: 20230722
  Serious: Yes (Hospitalization)
  Sender: FDA-Public Use
  Company Number: US-JNJFOC-20230549315

PATIENT
  Age: 17 Year
  Sex: Male
  Weight: 87.2 kg

DRUGS (2)
  1. INFLIXIMAB [Suspect]
     Active Substance: INFLIXIMAB
     Indication: Crohn^s disease
     Dosage: DATE OF LAST ADMINISTRATION WAS 23-JAN-2020
     Route: 041
     Dates: start: 20130809
  2. HUMIRA [Concomitant]
     Active Substance: ADALIMUMAB
     Dosage: DATE OF LAST ADMINISTRATION PRIOR TO THE EVENT WAS 15-MAY-2022
     Dates: start: 20200124

REACTIONS (1)
  - Peritonsillar abscess [Recovered/Resolved]

NARRATIVE: CASE EVENT DATE: 20220929
